FAERS Safety Report 25884628 (Version 2)
Quarter: 2025Q4

REPORT INFORMATION
  Report Type: Report from Study
  Country: ZA (occurrence: ZA)
  Receive Date: 20251006
  Receipt Date: 20251015
  Transmission Date: 20260118
  Serious: Yes (Hospitalization)
  Sender: ALEXION PHARMACEUTICALS
  Company Number: ZA-AstraZeneca-CH-00963535A

PATIENT
  Age: 74 Year
  Sex: Male

DRUGS (3)
  1. BUDESONIDE\FORMOTEROL [Suspect]
     Active Substance: BUDESONIDE\FORMOTEROL
     Indication: Asthma
     Dosage: 120 MICROGRAM PER INHALATION
  2. CICLESONIDE [Concomitant]
     Active Substance: CICLESONIDE
  3. LEVOCETIRIZINE DIHYDROCHLORIDE\MONTELUKAST SODIUM [Concomitant]
     Active Substance: LEVOCETIRIZINE DIHYDROCHLORIDE\MONTELUKAST SODIUM
     Indication: Asthma

REACTIONS (2)
  - Respiratory disorder [Unknown]
  - Cystitis [Unknown]
